FAERS Safety Report 7366253-5 (Version None)
Quarter: 2011Q1

REPORT INFORMATION
  Report Type: 
  Country: None (occurrence: None)
  Receive Date: 20110322
  Receipt Date: 20110309
  Transmission Date: 20110831
  Serious: Yes (Death, Other)
  Sender: FDA-Public Use
  Company Number: US-SANOFI-AVENTIS-2011SA015252

PATIENT
  Age: 55 Year
  Sex: Male

DRUGS (3)
  1. ALL OTHER THERAPEUTIC PRODUCTS [Concomitant]
  2. FENOFIBRATE [Concomitant]
  3. MULTAQ [Suspect]
     Indication: ATRIAL FIBRILLATION
     Route: 048
     Dates: start: 20091101, end: 20100414

REACTIONS (5)
  - GALLBLADDER DISORDER [None]
  - ATRIAL FIBRILLATION [None]
  - PANCREATIC DISORDER [None]
  - DRUG INEFFECTIVE [None]
  - MYOCARDIAL INFARCTION [None]
